FAERS Safety Report 5373464-7 (Version None)
Quarter: 2007Q2

REPORT INFORMATION
  Report Type: 
  Country: None (occurrence: None)
  Receive Date: 20070626
  Receipt Date: 20070626
  Transmission Date: 20071010
  Serious: No
  Sender: FDA-Public Use
  Company Number: None

PATIENT
  Age: 60 Year
  Sex: Male
  Weight: 23.5 kg

DRUGS (1)
  1. MEROPENEM 500MG IV VIAL [Suspect]
     Indication: INFECTION
     Dosage: 500MG Q24 IV
     Route: 042
     Dates: start: 20070519, end: 20070520

REACTIONS (2)
  - INFUSION RELATED REACTION [None]
  - RASH [None]
